FAERS Safety Report 7683198-1 (Version None)
Quarter: 2011Q3

REPORT INFORMATION
  Report Type: 
  Country: None (occurrence: None)
  Receive Date: 20110815
  Receipt Date: 20110814
  Transmission Date: 20111222
  Serious: No
  Sender: FDA-Public Use
  Company Number: US-PFIZER INC-2011186727

PATIENT
  Sex: Male
  Weight: 72.562 kg

DRUGS (2)
  1. KEPPRA [Concomitant]
     Indication: EPILEPSY
     Dosage: UNK
  2. CHANTIX [Suspect]
     Indication: SMOKING CESSATION THERAPY
     Dosage: 0.5 MG, 2X/DAY
     Route: 048
     Dates: start: 20110804

REACTIONS (1)
  - DRUG INEFFECTIVE [None]
